FAERS Safety Report 6933495-X (Version None)
Quarter: 2010Q3

REPORT INFORMATION
  Report Type: 
  Country: None (occurrence: None)
  Receive Date: 20100820
  Receipt Date: 20100818
  Transmission Date: 20110219
  Serious: Yes (Hospitalization)
  Sender: FDA-Public Use
  Company Number: US-BRISTOL-MYERS SQUIBB COMPANY-14394217

PATIENT
  Age: 71 Year
  Sex: Female

DRUGS (7)
  1. PACLITAXEL [Suspect]
     Indication: LUNG CANCER METASTATIC
     Route: 042
     Dates: start: 20080814
  2. CARBOPLATIN [Suspect]
     Indication: LUNG CANCER METASTATIC
     Dosage: 1 DOSAGE FORM = 6MG/ML/MIN
     Route: 042
     Dates: start: 20080814
  3. OMEPRAZOLE [Concomitant]
     Indication: GASTROOESOPHAGEAL REFLUX DISEASE
     Dates: start: 20050101
  4. SALBUTAMOL SULFATE [Concomitant]
     Indication: ASTHMA
     Route: 055
     Dates: start: 20050101
  5. VIGRAN [Concomitant]
     Indication: SUPPLEMENTATION THERAPY
     Dates: start: 20030101
  6. CYANOCOBALAMIN-ZINC TANNATE COMPLEX [Concomitant]
     Indication: VITAMIN SUPPLEMENTATION
     Dates: start: 20030101
  7. CHROMIUM PICOLINATE [Concomitant]
     Indication: SUPPLEMENTATION THERAPY
     Dates: start: 20030101

REACTIONS (3)
  - DEHYDRATION [None]
  - FEBRILE NEUTROPENIA [None]
  - PYREXIA [None]
